FAERS Safety Report 24684379 (Version 1)
Quarter: 2024Q4

REPORT INFORMATION
  Report Type: Report from Study
  Country: US (occurrence: US)
  Receive Date: 20241202
  Receipt Date: 20241202
  Transmission Date: 20250115
  Serious: Yes (Death, Other)
  Sender: ALEXION PHARMACEUTICALS
  Company Number: US-AstraZeneca-CH-00757085A

PATIENT

DRUGS (4)
  1. OSIMERTINIB [Suspect]
     Active Substance: OSIMERTINIB
     Dosage: UNK
  2. OSIMERTINIB [Suspect]
     Active Substance: OSIMERTINIB
     Dosage: UNK
  3. OSIMERTINIB [Suspect]
     Active Substance: OSIMERTINIB
     Dosage: UNK
  4. OSIMERTINIB [Suspect]
     Active Substance: OSIMERTINIB
     Dosage: UNK

REACTIONS (3)
  - Death [Fatal]
  - Urinary tract infection [Unknown]
  - Blood sodium decreased [Unknown]
